FAERS Safety Report 8779464 (Version 1)
Quarter: 2012Q4

REPORT INFORMATION
  Report Type: 
  Country: US (occurrence: US)
  Receive Date: 20120912
  Receipt Date: 20120912
  Transmission Date: 20130627
  Serious: No
  Sender: FDA-Public Use
  Company Number: US-BAYER-2012-094596

PATIENT
  Age: 38 Year
  Sex: Male

DRUGS (1)
  1. BETASERON [Suspect]
     Indication: MULTIPLE SCLEROSIS
     Dosage: .25 mg, QOD
     Route: 058
     Dates: start: 20120411, end: 20120810

REACTIONS (1)
  - Pain [None]
